FAERS Safety Report 19531208 (Version 1)
Quarter: 2021Q3

REPORT INFORMATION
  Report Type: Spontaneous
  Country: US (occurrence: US)
  Receive Date: 20210713
  Receipt Date: 20210713
  Transmission Date: 20211014
  Serious: Yes (Other)
  Sender: FDA-Public Use
  Company Number: US-GLAXOSMITHKLINE-US2021GSK144709

PATIENT
  Sex: Male

DRUGS (117)
  1. RANITIDINE CAPSULE [Suspect]
     Active Substance: RANITIDINE
     Indication: GASTROOESOPHAGEAL REFLUX DISEASE
  2. ZANTAC [Suspect]
     Active Substance: RANITIDINE HYDROCHLORIDE
     Indication: GASTRIC ULCER
  3. RANITIDINE. [Suspect]
     Active Substance: RANITIDINE
     Indication: DYSPEPSIA
  4. RANITIDINE. [Suspect]
     Active Substance: RANITIDINE
     Indication: GASTROOESOPHAGEAL REFLUX DISEASE
  5. RANITIDINE. [Suspect]
     Active Substance: RANITIDINE
     Indication: GASTROOESOPHAGEAL REFLUX DISEASE
  6. RANITIDINE. [Suspect]
     Active Substance: RANITIDINE
     Indication: ABDOMINAL DISCOMFORT
  7. ZANTAC [Suspect]
     Active Substance: RANITIDINE HYDROCHLORIDE
     Indication: ABDOMINAL DISCOMFORT
  8. ZANTAC [Suspect]
     Active Substance: RANITIDINE HYDROCHLORIDE
     Indication: INTESTINAL ULCER
  9. RANITIDINE. [Suspect]
     Active Substance: RANITIDINE
     Indication: GASTROOESOPHAGEAL REFLUX DISEASE
  10. ZANTAC [Suspect]
     Active Substance: RANITIDINE HYDROCHLORIDE
     Indication: GASTRIC ULCER
  11. ZANTAC [Suspect]
     Active Substance: RANITIDINE HYDROCHLORIDE
     Indication: GASTROOESOPHAGEAL REFLUX DISEASE
  12. ZANTAC [Suspect]
     Active Substance: RANITIDINE HYDROCHLORIDE
     Indication: HYPERCHLORHYDRIA
  13. ZANTAC [Suspect]
     Active Substance: RANITIDINE HYDROCHLORIDE
     Indication: DYSPEPSIA
  14. ZANTAC [Suspect]
     Active Substance: RANITIDINE HYDROCHLORIDE
     Indication: DYSPEPSIA
  15. ZANTAC [Suspect]
     Active Substance: RANITIDINE HYDROCHLORIDE
     Indication: GASTRIC ULCER
  16. ZANTAC [Suspect]
     Active Substance: RANITIDINE HYDROCHLORIDE
     Indication: EROSIVE OESOPHAGITIS
  17. RANITIDINE. [Suspect]
     Active Substance: RANITIDINE
     Indication: INTESTINAL ULCER
  18. RANITIDINE. [Suspect]
     Active Substance: RANITIDINE
     Indication: ABDOMINAL DISCOMFORT
  19. RANITIDINE. [Suspect]
     Active Substance: RANITIDINE
     Indication: EROSIVE OESOPHAGITIS
  20. RANITIDINE. [Suspect]
     Active Substance: RANITIDINE
     Indication: ABDOMINAL DISCOMFORT
  21. RANITIDINE. [Suspect]
     Active Substance: RANITIDINE
     Indication: DYSPEPSIA
     Dosage: 300 MG, QD
     Route: 065
     Dates: start: 200209, end: 202012
  22. RANITIDINE HYDROCHLORIDE. [Suspect]
     Active Substance: RANITIDINE HYDROCHLORIDE
     Indication: ABDOMINAL DISCOMFORT
  23. ZANTAC [Suspect]
     Active Substance: RANITIDINE HYDROCHLORIDE
     Indication: GASTRIC ULCER
  24. RANITIDINE. [Suspect]
     Active Substance: RANITIDINE
     Indication: DYSPEPSIA
     Dosage: 50 MG/ML, QD
     Route: 065
     Dates: start: 200209, end: 202012
  25. ZANTAC [Suspect]
     Active Substance: RANITIDINE HYDROCHLORIDE
     Indication: DYSPEPSIA
  26. ZANTAC [Suspect]
     Active Substance: RANITIDINE HYDROCHLORIDE
     Indication: DYSPEPSIA
  27. ZANTAC [Suspect]
     Active Substance: RANITIDINE HYDROCHLORIDE
     Indication: DYSPEPSIA
     Dosage: 300 MG, QD
     Route: 065
     Dates: start: 200209, end: 202012
  28. ZANTAC [Suspect]
     Active Substance: RANITIDINE HYDROCHLORIDE
     Indication: DYSPEPSIA
     Dosage: 300 MG, QD
     Route: 065
     Dates: start: 200209, end: 202012
  29. ZANTAC [Suspect]
     Active Substance: RANITIDINE HYDROCHLORIDE
     Indication: ABDOMINAL DISCOMFORT
  30. ZANTAC [Suspect]
     Active Substance: RANITIDINE HYDROCHLORIDE
     Indication: INTESTINAL ULCER
  31. RANITIDINE CAPSULE [Suspect]
     Active Substance: RANITIDINE
     Indication: EROSIVE OESOPHAGITIS
  32. RANITIDINE. [Suspect]
     Active Substance: RANITIDINE
     Indication: HYPERCHLORHYDRIA
  33. RANITIDINE. [Suspect]
     Active Substance: RANITIDINE
     Indication: ABDOMINAL DISCOMFORT
  34. RANITIDINE. [Suspect]
     Active Substance: RANITIDINE
     Indication: INTESTINAL ULCER
  35. RANITIDINE. [Suspect]
     Active Substance: RANITIDINE
     Indication: GASTROOESOPHAGEAL REFLUX DISEASE
  36. RANITIDINE. [Suspect]
     Active Substance: RANITIDINE
     Indication: INTESTINAL ULCER
  37. RANITIDINE. [Suspect]
     Active Substance: RANITIDINE
     Indication: GASTROOESOPHAGEAL REFLUX DISEASE
  38. RANITIDINE HYDROCHLORIDE. [Suspect]
     Active Substance: RANITIDINE HYDROCHLORIDE
     Indication: DYSPEPSIA
  39. RANITIDINE HYDROCHLORIDE. [Suspect]
     Active Substance: RANITIDINE HYDROCHLORIDE
     Indication: GASTROOESOPHAGEAL REFLUX DISEASE
  40. ZANTAC [Suspect]
     Active Substance: RANITIDINE HYDROCHLORIDE
     Indication: DYSPEPSIA
  41. ZANTAC [Suspect]
     Active Substance: RANITIDINE HYDROCHLORIDE
     Indication: GASTROOESOPHAGEAL REFLUX DISEASE
  42. RANITIDINE. [Suspect]
     Active Substance: RANITIDINE
     Indication: HYPERCHLORHYDRIA
  43. ZANTAC [Suspect]
     Active Substance: RANITIDINE HYDROCHLORIDE
     Indication: DYSPEPSIA
     Dosage: 15 MG/ML, QD
     Route: 065
     Dates: start: 200209, end: 202012
  44. ZANTAC [Suspect]
     Active Substance: RANITIDINE HYDROCHLORIDE
     Indication: DYSPEPSIA
  45. ZANTAC [Suspect]
     Active Substance: RANITIDINE HYDROCHLORIDE
     Indication: INTESTINAL ULCER
  46. ZANTAC [Suspect]
     Active Substance: RANITIDINE HYDROCHLORIDE
     Indication: DYSPEPSIA
     Dosage: 300 MG, QD
     Route: 065
     Dates: start: 200209, end: 202012
  47. ZANTAC [Suspect]
     Active Substance: RANITIDINE HYDROCHLORIDE
     Indication: ABDOMINAL DISCOMFORT
  48. ZANTAC [Suspect]
     Active Substance: RANITIDINE HYDROCHLORIDE
     Indication: DYSPEPSIA
     Dosage: 50 MG/ML, QD
     Route: 065
     Dates: start: 200209, end: 202012
  49. ZANTAC [Suspect]
     Active Substance: RANITIDINE HYDROCHLORIDE
     Indication: HYPERCHLORHYDRIA
  50. ZANTAC [Suspect]
     Active Substance: RANITIDINE HYDROCHLORIDE
     Indication: EROSIVE OESOPHAGITIS
  51. RANITIDINE. [Suspect]
     Active Substance: RANITIDINE
     Indication: EROSIVE OESOPHAGITIS
  52. RANITIDINE. [Suspect]
     Active Substance: RANITIDINE
     Indication: DYSPEPSIA
     Dosage: 300 MG, QD
     Route: 065
     Dates: start: 200209, end: 202012
  53. RANITIDINE. [Suspect]
     Active Substance: RANITIDINE
     Indication: HYPERCHLORHYDRIA
  54. RANITIDINE. [Suspect]
     Active Substance: RANITIDINE
     Indication: GASTRIC ULCER
  55. RANITIDINE. [Suspect]
     Active Substance: RANITIDINE
     Indication: HYPERCHLORHYDRIA
  56. RANITIDINE. [Suspect]
     Active Substance: RANITIDINE
     Indication: GASTRIC ULCER
  57. RANITIDINE. [Suspect]
     Active Substance: RANITIDINE
     Indication: DYSPEPSIA
  58. RANITIDINE. [Suspect]
     Active Substance: RANITIDINE
     Indication: INTESTINAL ULCER
  59. RANITIDINE. [Suspect]
     Active Substance: RANITIDINE
     Indication: EROSIVE OESOPHAGITIS
  60. RANITIDINE HYDROCHLORIDE. [Suspect]
     Active Substance: RANITIDINE HYDROCHLORIDE
     Indication: DYSPEPSIA
  61. RANITIDINE HYDROCHLORIDE. [Suspect]
     Active Substance: RANITIDINE HYDROCHLORIDE
     Indication: EROSIVE OESOPHAGITIS
  62. ZANTAC [Suspect]
     Active Substance: RANITIDINE HYDROCHLORIDE
     Indication: DYSPEPSIA
  63. RANITIDINE. [Suspect]
     Active Substance: RANITIDINE
     Indication: DYSPEPSIA
  64. RANITIDINE. [Suspect]
     Active Substance: RANITIDINE
     Indication: GASTRIC ULCER
  65. ZANTAC [Suspect]
     Active Substance: RANITIDINE HYDROCHLORIDE
     Indication: DYSPEPSIA
  66. ZANTAC [Suspect]
     Active Substance: RANITIDINE HYDROCHLORIDE
     Indication: DYSPEPSIA
  67. RANITIDINE CAPSULE [Suspect]
     Active Substance: RANITIDINE
     Indication: DYSPEPSIA
  68. RANITIDINE CAPSULE [Suspect]
     Active Substance: RANITIDINE
     Indication: INTESTINAL ULCER
  69. RANITIDINE HYDROCHLORIDE. [Suspect]
     Active Substance: RANITIDINE HYDROCHLORIDE
     Indication: DYSPEPSIA
     Dosage: 50 MG/ML, QD
     Route: 065
     Dates: start: 200209, end: 202012
  70. ZANTAC [Suspect]
     Active Substance: RANITIDINE HYDROCHLORIDE
     Indication: HYPERCHLORHYDRIA
  71. RANITIDINE. [Suspect]
     Active Substance: RANITIDINE
     Indication: ABDOMINAL DISCOMFORT
  72. ZANTAC [Suspect]
     Active Substance: RANITIDINE HYDROCHLORIDE
     Indication: ABDOMINAL DISCOMFORT
  73. ZANTAC [Suspect]
     Active Substance: RANITIDINE HYDROCHLORIDE
     Indication: INTESTINAL ULCER
  74. ZANTAC [Suspect]
     Active Substance: RANITIDINE HYDROCHLORIDE
     Indication: HYPERCHLORHYDRIA
  75. ZANTAC [Suspect]
     Active Substance: RANITIDINE HYDROCHLORIDE
     Indication: DYSPEPSIA
  76. ZANTAC [Suspect]
     Active Substance: RANITIDINE HYDROCHLORIDE
     Indication: GASTROOESOPHAGEAL REFLUX DISEASE
  77. ZANTAC [Suspect]
     Active Substance: RANITIDINE HYDROCHLORIDE
     Indication: GASTROOESOPHAGEAL REFLUX DISEASE
  78. RANITIDINE CAPSULE [Suspect]
     Active Substance: RANITIDINE
     Indication: DYSPEPSIA
  79. RANITIDINE CAPSULE [Suspect]
     Active Substance: RANITIDINE
     Indication: ABDOMINAL DISCOMFORT
  80. RANITIDINE CAPSULE [Suspect]
     Active Substance: RANITIDINE
     Indication: GASTRIC ULCER
  81. ZANTAC [Suspect]
     Active Substance: RANITIDINE HYDROCHLORIDE
     Indication: DYSPEPSIA
  82. ZANTAC [Suspect]
     Active Substance: RANITIDINE HYDROCHLORIDE
     Indication: DYSPEPSIA
  83. ZANTAC [Suspect]
     Active Substance: RANITIDINE HYDROCHLORIDE
     Indication: ABDOMINAL DISCOMFORT
  84. RANITIDINE. [Suspect]
     Active Substance: RANITIDINE
     Indication: HYPERCHLORHYDRIA
  85. RANITIDINE HYDROCHLORIDE. [Suspect]
     Active Substance: RANITIDINE HYDROCHLORIDE
     Indication: HYPERCHLORHYDRIA
  86. RANITIDINE HYDROCHLORIDE. [Suspect]
     Active Substance: RANITIDINE HYDROCHLORIDE
     Indication: INTESTINAL ULCER
  87. ZANTAC [Suspect]
     Active Substance: RANITIDINE HYDROCHLORIDE
     Indication: EROSIVE OESOPHAGITIS
  88. ZANTAC [Suspect]
     Active Substance: RANITIDINE HYDROCHLORIDE
     Indication: ABDOMINAL DISCOMFORT
  89. RANITIDINE CAPSULE [Suspect]
     Active Substance: RANITIDINE
     Indication: DYSPEPSIA
     Dosage: 300 MG, QD
     Route: 065
     Dates: start: 200209, end: 202012
  90. ZANTAC [Suspect]
     Active Substance: RANITIDINE HYDROCHLORIDE
     Indication: INTESTINAL ULCER
  91. RANITIDINE. [Suspect]
     Active Substance: RANITIDINE
     Indication: DYSPEPSIA
  92. RANITIDINE. [Suspect]
     Active Substance: RANITIDINE
     Indication: GASTRIC ULCER
  93. RANITIDINE. [Suspect]
     Active Substance: RANITIDINE
     Indication: DYSPEPSIA
  94. RANITIDINE. [Suspect]
     Active Substance: RANITIDINE
     Indication: DYSPEPSIA
  95. RANITIDINE. [Suspect]
     Active Substance: RANITIDINE
     Indication: DYSPEPSIA
     Dosage: 300 MG, QD
     Route: 065
     Dates: start: 200209, end: 202012
  96. RANITIDINE. [Suspect]
     Active Substance: RANITIDINE
     Indication: DYSPEPSIA
  97. RANITIDINE. [Suspect]
     Active Substance: RANITIDINE
     Indication: EROSIVE OESOPHAGITIS
  98. RANITIDINE. [Suspect]
     Active Substance: RANITIDINE
     Indication: DYSPEPSIA
  99. ZANTAC [Suspect]
     Active Substance: RANITIDINE HYDROCHLORIDE
     Indication: DYSPEPSIA
     Dosage: 50 MG/ML, QD
     Route: 065
     Dates: start: 200209, end: 202012
  100. RANITIDINE. [Suspect]
     Active Substance: RANITIDINE
     Indication: DYSPEPSIA
  101. ZANTAC [Suspect]
     Active Substance: RANITIDINE HYDROCHLORIDE
     Indication: INTESTINAL ULCER
  102. ZANTAC [Suspect]
     Active Substance: RANITIDINE HYDROCHLORIDE
     Indication: HYPERCHLORHYDRIA
  103. ZANTAC [Suspect]
     Active Substance: RANITIDINE HYDROCHLORIDE
     Indication: GASTROOESOPHAGEAL REFLUX DISEASE
  104. RANITIDINE. [Suspect]
     Active Substance: RANITIDINE
     Indication: DYSPEPSIA
     Dosage: 15 MG/ML, QD
     Route: 065
     Dates: start: 200209
  105. RANITIDINE. [Suspect]
     Active Substance: RANITIDINE
     Indication: DYSPEPSIA
  106. RANITIDINE. [Suspect]
     Active Substance: RANITIDINE
     Indication: GASTRIC ULCER
  107. RANITIDINE HYDROCHLORIDE. [Suspect]
     Active Substance: RANITIDINE HYDROCHLORIDE
     Indication: GASTRIC ULCER
  108. RANITIDINE. [Suspect]
     Active Substance: RANITIDINE
     Indication: INTESTINAL ULCER
  109. RANITIDINE. [Suspect]
     Active Substance: RANITIDINE
     Indication: EROSIVE OESOPHAGITIS
  110. ZANTAC [Suspect]
     Active Substance: RANITIDINE HYDROCHLORIDE
     Indication: HYPERCHLORHYDRIA
  111. ZANTAC [Suspect]
     Active Substance: RANITIDINE HYDROCHLORIDE
     Indication: EROSIVE OESOPHAGITIS
  112. ZANTAC [Suspect]
     Active Substance: RANITIDINE HYDROCHLORIDE
     Indication: GASTROOESOPHAGEAL REFLUX DISEASE
  113. ZANTAC [Suspect]
     Active Substance: RANITIDINE HYDROCHLORIDE
     Indication: GASTRIC ULCER
  114. ZANTAC [Suspect]
     Active Substance: RANITIDINE HYDROCHLORIDE
     Indication: EROSIVE OESOPHAGITIS
  115. ZANTAC [Suspect]
     Active Substance: RANITIDINE HYDROCHLORIDE
     Indication: GASTRIC ULCER
  116. ZANTAC [Suspect]
     Active Substance: RANITIDINE HYDROCHLORIDE
     Indication: EROSIVE OESOPHAGITIS
  117. RANITIDINE CAPSULE [Suspect]
     Active Substance: RANITIDINE
     Indication: HYPERCHLORHYDRIA

REACTIONS (17)
  - Small intestine carcinoma [Unknown]
  - Haematological malignancy [Unknown]
  - Brain neoplasm malignant [Unknown]
  - Gallbladder cancer [Unknown]
  - Skin cancer [Unknown]
  - Tongue neoplasm malignant stage unspecified [Unknown]
  - Bladder cancer [Unknown]
  - Oesophageal carcinoma [Unknown]
  - Hepatic cancer [Unknown]
  - Prostate cancer [Unknown]
  - Gastric cancer [Unknown]
  - Lung neoplasm malignant [Unknown]
  - Renal cancer [Unknown]
  - Gastrointestinal carcinoma [Unknown]
  - Pancreatic carcinoma [Unknown]
  - Testis cancer [Unknown]
  - Appendix cancer [Unknown]
